FAERS Safety Report 8457434-8 (Version None)
Quarter: 2012Q2

REPORT INFORMATION
  Report Type: 
  Country: None (occurrence: None)
  Receive Date: 20120621
  Receipt Date: 20120613
  Transmission Date: 20120825
  Serious: Yes (Hospitalization, Disabling, Other)
  Sender: FDA-Public Use
  Company Number: US-MERCK-1108USA02808

PATIENT
  Age: 47 Year
  Sex: Female
  Weight: 59 kg

DRUGS (9)
  1. FOSAMAX [Suspect]
     Route: 048
     Dates: start: 20000101, end: 20021001
  2. ACTONEL [Suspect]
     Indication: OSTEOPOROSIS
     Route: 048
     Dates: start: 20020101, end: 20050301
  3. BONIVA [Suspect]
     Indication: OSTEOPOROSIS
     Route: 048
     Dates: start: 20061201, end: 20090801
  4. FOSAMAX [Suspect]
     Indication: OSTEOPOROSIS
     Route: 048
     Dates: start: 19970101, end: 20001001
  5. FOSAMAX [Suspect]
     Route: 048
     Dates: start: 20050301, end: 20061201
  6. FOSAMAX [Suspect]
     Indication: OSTEOPENIA
     Route: 048
     Dates: start: 19970101, end: 20001001
  7. FOSAMAX [Suspect]
     Route: 048
     Dates: start: 20000101, end: 20021001
  8. CORTICOSTEROIDS (UNSPECIFIED) [Concomitant]
     Route: 065
     Dates: start: 19970101, end: 20090101
  9. FOSAMAX [Suspect]
     Route: 048
     Dates: start: 20050301, end: 20061201

REACTIONS (58)
  - CONSTIPATION [None]
  - SPINAL FRACTURE [None]
  - ADVERSE DRUG REACTION [None]
  - SPONDYLOLISTHESIS [None]
  - HEPATITIS C [None]
  - RHEUMATOID ARTHRITIS [None]
  - NASAL CONGESTION [None]
  - SINUS DISORDER [None]
  - BLOOD CHOLESTEROL INCREASED [None]
  - BONE ATROPHY [None]
  - GINGIVAL BLEEDING [None]
  - FOOT FRACTURE [None]
  - FIBROMYALGIA [None]
  - RHINITIS [None]
  - TOOTH INFECTION [None]
  - DENTAL CARIES [None]
  - CHRONIC FATIGUE SYNDROME [None]
  - OSTEOARTHRITIS [None]
  - SYSTEMIC LUPUS ERYTHEMATOSUS [None]
  - GINGIVAL ABSCESS [None]
  - DRUG HYPERSENSITIVITY [None]
  - SPINAL DISORDER [None]
  - SLEEP DISORDER [None]
  - LYME DISEASE [None]
  - JAW CYST [None]
  - INTERVERTEBRAL DISC PROTRUSION [None]
  - RADICULOPATHY [None]
  - GINGIVAL DISORDER [None]
  - VIRAL TITRE INCREASED [None]
  - MYOFASCIAL PAIN SYNDROME [None]
  - IRRITABLE BOWEL SYNDROME [None]
  - INFECTION [None]
  - VULVAL DISORDER [None]
  - MUSCULOSKELETAL CHEST PAIN [None]
  - SPINAL COLUMN STENOSIS [None]
  - ROTATOR CUFF SYNDROME [None]
  - DENTAL FISTULA [None]
  - HEPATITIS B CORE ANTIBODY POSITIVE [None]
  - HAEMORRHOIDS [None]
  - DECREASED APPETITE [None]
  - BONE DISORDER [None]
  - HEPATITIS B [None]
  - RIB FRACTURE [None]
  - PHARYNGEAL CYST [None]
  - PANIC ATTACK [None]
  - MITRAL VALVE PROLAPSE [None]
  - IMPAIRED HEALING [None]
  - CERVICAL VERTEBRAL FRACTURE [None]
  - INTERVERTEBRAL DISC DEGENERATION [None]
  - OSTEONECROSIS OF JAW [None]
  - SPONDYLITIS [None]
  - OSTEOPOROSIS [None]
  - ABSCESS [None]
  - ANGINA PECTORIS [None]
  - BONE CYST [None]
  - PERIODONTAL DISEASE [None]
  - TOOTH DISORDER [None]
  - SACROILIITIS [None]
